FAERS Safety Report 4721404-3 (Version None)
Quarter: 2005Q3

REPORT INFORMATION
  Report Type: 
  Country: None (occurrence: None)
  Receive Date: 20050721
  Receipt Date: 20040811
  Transmission Date: 20060218
  Serious: Yes (Hospitalization, Other)
  Sender: FDA-Public Use
  Company Number: US-BRISTOL-MYERS SQUIBB COMPANY-12667143

PATIENT
  Age: 76 Year
  Sex: Male
  Weight: 77 kg

DRUGS (11)
  1. COUMADIN [Suspect]
     Indication: ANEURYSM
     Dosage: VARYING DOSAGES, CURRENTLY DOSE IS 0.5 MG (1/2 OF 1 MG TAB) DAILY
     Route: 048
  2. COUMADIN [Suspect]
     Indication: MYOCARDIAL INFARCTION
     Dosage: VARYING DOSAGES, CURRENTLY DOSE IS 0.5 MG (1/2 OF 1 MG TAB) DAILY
     Route: 048
  3. LASIX [Concomitant]
     Dosage: 40 MG TABS, 5 TABS IN AM AND PM FOR 3-4 MONTHS
     Route: 048
  4. POTASSIUM CHLORIDE [Concomitant]
     Dosage: ON FOR 3-4 MONTHS
  5. ALDACTONE [Concomitant]
     Dosage: ON FOR YEARS
  6. TOPROL-XL [Concomitant]
     Dosage: ON FOR 2-3 YEARS
  7. ZOCOR [Concomitant]
     Dosage: ON FOR 2-3 YEARS
  8. UNIVASC [Concomitant]
     Dosage: ON FOR 4-5 YEARS
  9. NU-IRON [Concomitant]
     Dosage: ON FOR 3 MONTHS
  10. PREVACID [Concomitant]
     Dosage: ON FOR 3-4 MONTHS
  11. FOLIC ACID [Concomitant]
     Dosage: ^400 MG^ DAILY FOR 3-4 YEARS

REACTIONS (6)
  - ACCIDENTAL OVERDOSE [None]
  - CONTUSION [None]
  - INCORRECT DOSE ADMINISTERED [None]
  - INTERNATIONAL NORMALISED RATIO INCREASED [None]
  - PROTHROMBIN TIME PROLONGED [None]
  - PROTHROMBIN TIME RATIO ABNORMAL [None]
